FAERS Safety Report 8408624-1 (Version None)
Quarter: 2012Q2

REPORT INFORMATION
  Report Type: 
  Country: None (occurrence: None)
  Receive Date: 20120604
  Receipt Date: 20120125
  Transmission Date: 20120825
  Serious: No
  Sender: FDA-Public Use
  Company Number: US-NOVEN-12US003994

PATIENT
  Sex: Female

DRUGS (2)
  1. DAYTRANA [Suspect]
     Indication: ATTENTION DEFICIT/HYPERACTIVITY DISORDER
     Dosage: 10 MG DAILY FOR 9 HOURS
     Route: 062
     Dates: start: 20111201
  2. DAYTRANA [Suspect]
     Dosage: 15 MG, QD
     Route: 062
     Dates: start: 20120120

REACTIONS (7)
  - DRUG DOSE OMISSION [None]
  - DRUG ADMINISTERED AT INAPPROPRIATE SITE [None]
  - DRUG ADMINISTRATION ERROR [None]
  - ACCIDENTAL EXPOSURE [None]
  - PRODUCT QUALITY ISSUE [None]
  - APPLICATION SITE ERYTHEMA [None]
  - APPLICATION SITE INFLAMMATION [None]
